FAERS Safety Report 8915175 (Version 2)
Quarter: 2014Q1

REPORT INFORMATION
  Report Type: Spontaneous
  Country: US (occurrence: US)
  Receive Date: 20121119
  Receipt Date: 20140103
  Transmission Date: 20141002
  Serious: No
  Sender: FDA-Public Use
  Company Number: US-ASTRAZENECA-2012SE84172

PATIENT
  Age: 66 Year
  Sex: Female
  Weight: 97.5 kg

DRUGS (6)
  1. NEXIUM [Suspect]
     Indication: GASTROOESOPHAGEAL REFLUX DISEASE
     Route: 048
     Dates: start: 2009
  2. PRILOSEC [Suspect]
     Indication: GASTROOESOPHAGEAL REFLUX DISEASE
     Route: 048
  3. PRILOSEC [Suspect]
     Indication: GASTROOESOPHAGEAL REFLUX DISEASE
     Route: 048
  4. SYMBICORT [Suspect]
     Indication: MULTIPLE ALLERGIES
     Dosage: 2PUFFS 160-4.5MCG BID
     Route: 055
     Dates: start: 2012
  5. BENECAR HCT [Concomitant]
     Indication: HYPERTENSION
  6. SINGULAIR [Concomitant]
     Indication: MULTIPLE ALLERGIES

REACTIONS (8)
  - Asthma [Unknown]
  - Cough [Unknown]
  - Hypertension [Unknown]
  - Dyspepsia [Unknown]
  - Drug ineffective [Unknown]
  - Intentional drug misuse [Unknown]
  - Drug ineffective [Unknown]
  - Off label use [Unknown]
